FAERS Safety Report 5621727-X (Version None)
Quarter: 2008Q1

REPORT INFORMATION
  Report Type: 
  Country: None (occurrence: None)
  Receive Date: 20080211
  Receipt Date: 20080131
  Transmission Date: 20080703
  Serious: Yes (Other)
  Sender: FDA-Public Use
  Company Number: PHEH2008US01393

PATIENT
  Sex: Female

DRUGS (2)
  1. RITALIN [Suspect]
     Indication: ATTENTION DEFICIT/HYPERACTIVITY DISORDER
  2. METHYLPHENIDATE HCL [Suspect]
     Indication: ATTENTION DEFICIT/HYPERACTIVITY DISORDER

REACTIONS (7)
  - BLOOD PRESSURE INCREASED [None]
  - DYSPHAGIA [None]
  - DYSPNOEA [None]
  - HYPERSOMNIA [None]
  - NIGHT SWEATS [None]
  - PLEURISY [None]
  - PYREXIA [None]
